FAERS Safety Report 8294145-6 (Version None)
Quarter: 2012Q2

REPORT INFORMATION
  Report Type: 
  Country: None (occurrence: None)
  Receive Date: 20120418
  Receipt Date: 20120412
  Transmission Date: 20120825
  Serious: Yes (Hospitalization, Other)
  Sender: FDA-Public Use
  Company Number: PHHY2012FR029478

PATIENT
  Sex: Male

DRUGS (2)
  1. GLEEVEC [Suspect]
     Dosage: 600 MG, DAILY
     Dates: start: 20060301
  2. GLEEVEC [Suspect]
     Indication: CHRONIC MYELOID LEUKAEMIA
     Dosage: 400 MG, DAILY
     Dates: start: 20021001

REACTIONS (4)
  - METASTASES TO LIVER [None]
  - COLON CANCER [None]
  - NEOPLASM MALIGNANT [None]
  - METASTASES TO LYMPH NODES [None]
